FAERS Safety Report 7668137-1 (Version None)
Quarter: 2011Q3

REPORT INFORMATION
  Report Type: 
  Country: None (occurrence: None)
  Receive Date: 20110808
  Receipt Date: 20110802
  Transmission Date: 20111222
  Serious: Yes (Death, Hospitalization, Other)
  Sender: FDA-Public Use
  Company Number: PHHY2011US68212

PATIENT
  Sex: Female

DRUGS (14)
  1. FLUID/ELECTROLYTE REPLACEMENT THERAPY [Concomitant]
  2. SODIUM BICARBONATE [Concomitant]
  3. VANCOMYCIN [Concomitant]
  4. LEVOPHED [Concomitant]
  5. BLOOD CELLS, RED [Concomitant]
  6. EXJADE [Suspect]
     Dosage: 1250 MG, QD
     Route: 048
  7. ROCEPHIN [Concomitant]
  8. MORPHINE [Concomitant]
  9. ZOSYN [Concomitant]
  10. DOPAMINE HCL [Concomitant]
  11. EPINEPHRINE [Concomitant]
  12. ATROPINE [Concomitant]
  13. CALCIUM CHLORIDE [Concomitant]
  14. VASOPRESSIN INJECTION [Concomitant]

REACTIONS (24)
  - LUNG INFILTRATION [None]
  - DEATH [None]
  - DISSEMINATED INTRAVASCULAR COAGULATION [None]
  - INTERNATIONAL NORMALISED RATIO INCREASED [None]
  - SOMNOLENCE [None]
  - SICKLE CELL ANAEMIA WITH CRISIS [None]
  - ACTIVATED PARTIAL THROMBOPLASTIN TIME PROLONGED [None]
  - PLATELET COUNT DECREASED [None]
  - SEPSIS [None]
  - HYPERBILIRUBINAEMIA [None]
  - URINARY TRACT INFECTION [None]
  - RESPIRATORY DISORDER [None]
  - HYPOPNOEA [None]
  - LEUKOCYTOSIS [None]
  - WHITE BLOOD CELLS URINE [None]
  - TACHYCARDIA [None]
  - CARDIAC ARREST [None]
  - ASPARTATE AMINOTRANSFERASE INCREASED [None]
  - HYPOTENSION [None]
  - TRANSAMINASES INCREASED [None]
  - PAIN [None]
  - DYSPNOEA [None]
  - BRADYCARDIA [None]
  - ALANINE AMINOTRANSFERASE INCREASED [None]
